FAERS Safety Report 23250360 (Version 3)
Quarter: 2024Q4

REPORT INFORMATION
  Report Type: Spontaneous
  Country: US (occurrence: US)
  Receive Date: 20231201
  Receipt Date: 20241007
  Transmission Date: 20250115
  Serious: No
  Sender: PFIZER
  Company Number: US-PFIZER INC-PV202300193962

PATIENT
  Age: 83 Year
  Sex: Female

DRUGS (2)
  1. TIKOSYN [Suspect]
     Active Substance: DOFETILIDE
     Dosage: UNK
  2. TIKOSYN [Suspect]
     Active Substance: DOFETILIDE
     Dosage: 2 CAPS (250 MCG) TWICE DAILY (NOT YET STARTED)

REACTIONS (2)
  - Visual impairment [Unknown]
  - Product prescribing error [Unknown]
